FAERS Safety Report 7892193-9 (Version None)
Quarter: 2011Q4

REPORT INFORMATION
  Report Type: 
  Country: None (occurrence: None)
  Receive Date: 20111104
  Receipt Date: 20111026
  Transmission Date: 20120403
  Serious: Yes (Hospitalization)
  Sender: FDA-Public Use
  Company Number: JP-ASTRAZENECA-2011SE65823

PATIENT
  Age: 26565 Day
  Sex: Female

DRUGS (9)
  1. PROTELOS [Concomitant]
     Indication: OSTEOPOROSIS
     Route: 048
     Dates: end: 20110822
  2. ALPHAGAN [Concomitant]
     Indication: GLAUCOMA
     Route: 047
  3. LAMALINE [Concomitant]
     Indication: PAIN
     Route: 048
     Dates: start: 19680101, end: 20110822
  4. EZETIMIBE [Concomitant]
     Indication: HYPERCHOLESTEROLAEMIA
     Route: 048
  5. LYRICA [Concomitant]
     Indication: PAIN
     Route: 048
     Dates: start: 20110819, end: 20110822
  6. FIXICAL VITAMINE D3 [Concomitant]
     Indication: OSTEOPOROSIS
     Route: 048
  7. FIXICAL VITAMINE D3 [Concomitant]
     Route: 048
     Dates: start: 20081101
  8. CANDESARTAN CILEXETIL [Suspect]
     Indication: HYPERTENSION
     Route: 048
     Dates: start: 20070101, end: 20110822
  9. LATANOPROST [Concomitant]
     Indication: GLAUCOMA
     Route: 047

REACTIONS (2)
  - HYPONATRAEMIA [None]
  - CONFUSIONAL STATE [None]
